FAERS Safety Report 11647935 (Version 1)
Quarter: 2015Q4

REPORT INFORMATION
  Report Type: Spontaneous
  Country: US (occurrence: None)
  Receive Date: 20151020
  Receipt Date: 20151020
  Transmission Date: 20160304
  Serious: Yes (Disabling)
  Sender: FDA-Public Use
  Company Number: None

PATIENT
  Age: 59 Year
  Sex: Female
  Weight: 76.2 kg

DRUGS (6)
  1. WOMEN^S MULTI-VITAMIN [Concomitant]
  2. VITAMIN D [Concomitant]
     Active Substance: CHOLECALCIFEROL
  3. CALCIUM [Concomitant]
     Active Substance: CALCIUM
  4. LEVOFLOXACIN. [Suspect]
     Active Substance: LEVOFLOXACIN
     Indication: POST PROCEDURAL INFECTION
     Route: 048
     Dates: start: 20150809, end: 20150814
  5. MAGNESIUM [Concomitant]
     Active Substance: MAGNESIUM
  6. FISH OIL [Concomitant]
     Active Substance: FISH OIL

REACTIONS (11)
  - Musculoskeletal disorder [None]
  - Musculoskeletal pain [None]
  - Insomnia [None]
  - Arthralgia [None]
  - Activities of daily living impaired [None]
  - Pain [None]
  - Pain in extremity [None]
  - Rotator cuff syndrome [None]
  - Tendon disorder [None]
  - Influenza [None]
  - Joint effusion [None]

NARRATIVE: CASE EVENT DATE: 20150809
